FAERS Safety Report 5008686-8 (Version None)
Quarter: 2006Q2

REPORT INFORMATION
  Report Type: 
  Country: None (occurrence: None)
  Receive Date: 20060523
  Receipt Date: 20060517
  Transmission Date: 20061013
  Serious: Yes (Hospitalization)
  Sender: FDA-Public Use
  Company Number: FR-GLAXOSMITHKLINE-B0424743A

PATIENT
  Age: 82 Year
  Sex: Female

DRUGS (4)
  1. ZANTAC [Suspect]
     Dosage: 3UNIT PER DAY
     Route: 048
     Dates: end: 20060423
  2. PERIDYS [Suspect]
     Dosage: 10MG UNKNOWN
     Route: 048
     Dates: end: 20060423
  3. ZOLOFT [Suspect]
     Dosage: 50MG PER DAY
     Route: 048
     Dates: end: 20060423
  4. ARIMIDEX [Concomitant]
     Route: 065

REACTIONS (1)
  - HYPONATRAEMIA [None]
